FAERS Safety Report 7647930-5 (Version None)
Quarter: 2011Q3

REPORT INFORMATION
  Report Type: 
  Country: None (occurrence: None)
  Receive Date: 20110801
  Receipt Date: 20110720
  Transmission Date: 20111222
  Serious: Yes (Hospitalization)
  Sender: FDA-Public Use
  Company Number: CA-JNJFOC-20110400744

PATIENT
  Sex: Female
  Weight: 59 kg

DRUGS (10)
  1. REMICADE [Suspect]
     Indication: CROHN'S DISEASE
     Route: 042
     Dates: start: 20100601
  2. DILTIAZEM [Concomitant]
  3. LASIX [Concomitant]
  4. PLAVIX [Concomitant]
  5. FERROUS GLUCONATE [Concomitant]
  6. ADVAIR DISKUS 100/50 [Concomitant]
  7. POTASSIUM CHLORIDE [Concomitant]
  8. AMIODARONE HCL [Concomitant]
  9. SYNTHROID [Concomitant]
  10. FERROUS SULFATE TAB [Concomitant]

REACTIONS (6)
  - OESOPHAGEAL CANDIDIASIS [None]
  - BRONCHITIS CHRONIC [None]
  - HAEMOGLOBIN DECREASED [None]
  - FEMUR FRACTURE [None]
  - KNEE ARTHROPLASTY [None]
  - FALL [None]
